FAERS Safety Report 21127109 (Version 1)
Quarter: 2022Q3

REPORT INFORMATION
  Report Type: Spontaneous
  Country: US (occurrence: US)
  Receive Date: 20220725
  Receipt Date: 20220725
  Transmission Date: 20221026
  Serious: No
  Sender: FDA-Public Use
  Company Number: US-ABBVIE-21K-163-4076961-00

PATIENT
  Age: 48 Year
  Sex: Female
  Weight: 78.542 kg

DRUGS (3)
  1. LEVOTHYROXINE [Suspect]
     Active Substance: LEVOTHYROXINE
     Indication: Hypothyroidism
     Dosage: MONDAY TO FRIDAY
     Route: 048
     Dates: start: 20171202, end: 2019
  2. LEVOTHYROXINE [Suspect]
     Active Substance: LEVOTHYROXINE
     Dosage: SATURDAY AND SUNDAY
     Route: 048
     Dates: start: 20171202, end: 2019
  3. SYNTHROID [Suspect]
     Active Substance: LEVOTHYROXINE SODIUM
     Indication: Hypothyroidism
     Dosage: SATURDAY AND SUNDAY
     Route: 048

REACTIONS (5)
  - Agitation [Recovered/Resolved]
  - Emotional distress [Recovered/Resolved]
  - Lymphadenopathy [Unknown]
  - Blood thyroid stimulating hormone abnormal [Unknown]
  - Anxiety [Recovered/Resolved]

NARRATIVE: CASE EVENT DATE: 20171201
